FAERS Safety Report 9783115 (Version 1)
Quarter: 2013Q4

REPORT INFORMATION
  Report Type: Spontaneous
  Country: US (occurrence: None)
  Receive Date: 20131217
  Receipt Date: 20131217
  Transmission Date: 20140711
  Serious: Yes (Other)
  Sender: FDA-Public Use
  Company Number: 43363

PATIENT
  Age: 80 Year
  Sex: Male
  Weight: 51.71 kg

DRUGS (7)
  1. GLASSIA [Suspect]
     Indication: ALPHA-1 ANTI-TRYPSIN DEFICIENCY
     Route: 042
     Dates: start: 201112
  2. OXYGEN THERAPY [Concomitant]
  3. SYMBICORT [Concomitant]
  4. SPIRIVA [Concomitant]
  5. PROVENTIL [Concomitant]
  6. PREDNISONE [Concomitant]
  7. ALBUTEROL INHALER [Concomitant]

REACTIONS (2)
  - Weight decreased [None]
  - Cataract [None]
